FAERS Safety Report 11951595 (Version 2)
Quarter: 2016Q1

REPORT INFORMATION
  Report Type: Spontaneous
  Country: US (occurrence: US)
  Receive Date: 20160126
  Receipt Date: 20160229
  Transmission Date: 20160526
  Serious: No
  Sender: FDA-Public Use
  Company Number: US-B.I. PHARMACEUTICALS,INC./RIDGEFIELD-2016-BI-02320BP

PATIENT
  Age: 82 Year
  Sex: Male
  Weight: 91.17 kg

DRUGS (8)
  1. DIGOXIN. [Concomitant]
     Active Substance: DIGOXIN
     Indication: ATRIAL FIBRILLATION
     Dosage: 0.125 MG
     Route: 048
     Dates: start: 2013
  2. OXYBUTIN [Concomitant]
     Active Substance: OXYBUTYNIN
     Indication: URINARY RETENTION
     Dosage: 5 MG
     Route: 048
  3. TYLENOL [Concomitant]
     Active Substance: ACETAMINOPHEN
     Indication: PAIN
     Dosage: STRENGTH: 500MG, DAILY DOSE: ONE TABLET 1 TIME AS REQUIRED.
     Route: 048
  4. PRADAXA [Suspect]
     Active Substance: DABIGATRAN ETEXILATE MESYLATE
     Indication: CEREBROVASCULAR ACCIDENT PROPHYLAXIS
     Dosage: 300 MG
     Route: 048
     Dates: start: 2012, end: 201512
  5. POTASSIUM [Concomitant]
     Active Substance: POTASSIUM
     Indication: SUPPLEMENTATION THERAPY
     Dosage: 40 MEQ
     Route: 048
     Dates: start: 2013
  6. SIMVASTATIN. [Concomitant]
     Active Substance: SIMVASTATIN
     Indication: BLOOD CHOLESTEROL INCREASED
     Dosage: 20 MG
     Route: 048
     Dates: start: 2013
  7. MAXZIDE [Concomitant]
     Active Substance: HYDROCHLOROTHIAZIDE\TRIAMTERENE
     Indication: FLUID RETENTION
     Dosage: 75 MG
     Route: 048
     Dates: start: 2013
  8. PRADAXA [Suspect]
     Active Substance: DABIGATRAN ETEXILATE MESYLATE
     Indication: ATRIAL FIBRILLATION
     Dosage: 150 MG
     Route: 048
     Dates: start: 201512, end: 20160208

REACTIONS (6)
  - Epistaxis [Recovered/Resolved]
  - Ear haemorrhage [Recovered/Resolved]
  - Dysphonia [Not Recovered/Not Resolved]
  - Meniscus injury [Not Recovered/Not Resolved]
  - Skin tightness [Not Recovered/Not Resolved]
  - Epistaxis [Recovered/Resolved]

NARRATIVE: CASE EVENT DATE: 201510
